FAERS Safety Report 6670444-6 (Version None)
Quarter: 2010Q2

REPORT INFORMATION
  Report Type: 
  Country: None (occurrence: None)
  Receive Date: 20100407
  Receipt Date: 20100331
  Transmission Date: 20101027
  Serious: No
  Sender: FDA-Public Use
  Company Number: US-BIOGENIDEC-2009BI030153

PATIENT
  Age: 51 Year
  Sex: Female

DRUGS (1)
  1. TYSABRI [Suspect]
     Indication: MULTIPLE SCLEROSIS
     Route: 042
     Dates: start: 20090904, end: 20091002

REACTIONS (13)
  - ANAEMIA [None]
  - CLOSTRIDIAL INFECTION [None]
  - COLITIS [None]
  - DEHYDRATION [None]
  - DIARRHOEA [None]
  - DYSURIA [None]
  - FEELING COLD [None]
  - FLATULENCE [None]
  - GASTROINTESTINAL INFECTION [None]
  - HYPOTENSION [None]
  - INFLUENZA [None]
  - PYREXIA [None]
  - SINUSITIS [None]
